FAERS Safety Report 7610005-5 (Version None)
Quarter: 2011Q3

REPORT INFORMATION
  Report Type: 
  Country: None (occurrence: None)
  Receive Date: 20110714
  Receipt Date: 20110705
  Transmission Date: 20111222
  Serious: Yes (Hospitalization)
  Sender: FDA-Public Use
  Company Number: BR-ASTRAZENECA-2011SE40251

PATIENT
  Age: 67 Year
  Sex: Female
  Weight: 112 kg

DRUGS (9)
  1. ATENOLOL [Suspect]
     Indication: HYPERTENSION
     Route: 048
     Dates: start: 20040101, end: 20110501
  2. SOMALGIN CARDIO [Concomitant]
     Dosage: DAILY
     Route: 048
     Dates: start: 20040101
  3. INSULIN [Concomitant]
     Route: 058
     Dates: start: 20040101
  4. BERTACARD [Suspect]
     Indication: HYPERTENSION
     Route: 048
     Dates: start: 20040101, end: 20110501
  5. SUSTRATE [Concomitant]
     Dosage: THREE TIMES A DAY
     Route: 048
     Dates: start: 20040101
  6. LASIX [Concomitant]
     Route: 048
     Dates: start: 20040101
  7. SIMVASTATIN [Concomitant]
     Dosage: DAILY
     Route: 048
     Dates: start: 20040101
  8. DIOVAN [Suspect]
     Indication: HYPERTENSION
     Route: 048
     Dates: start: 20040101, end: 20110501
  9. GALVUS [Concomitant]
     Indication: DIABETES MELLITUS
     Route: 048
     Dates: start: 20040101

REACTIONS (7)
  - ARTERIAL OCCLUSIVE DISEASE [None]
  - OEDEMA PERIPHERAL [None]
  - ARTERIAL CATHETERISATION [None]
  - ALLERGIC RESPIRATORY DISEASE [None]
  - BACK PAIN [None]
  - CHEST PAIN [None]
  - ANGIOPLASTY [None]
